FAERS Safety Report 8240466-2 (Version None)
Quarter: 2012Q1

REPORT INFORMATION
  Report Type: 
  Country: None (occurrence: None)
  Receive Date: 20120328
  Receipt Date: 20120319
  Transmission Date: 20120608
  Serious: Yes (Other)
  Sender: FDA-Public Use
  Company Number: FR-ASTRAZENECA-2009SE10854

PATIENT
  Sex: Female

DRUGS (1)
  1. ARIMIDEX [Suspect]
     Indication: BREAST CANCER FEMALE
     Route: 048
     Dates: start: 20070319

REACTIONS (4)
  - ARTHRALGIA [None]
  - ASTHENIA [None]
  - LOSS OF CONSCIOUSNESS [None]
  - HAND FRACTURE [None]
